FAERS Safety Report 21016056 (Version 13)
Quarter: 2023Q2

REPORT INFORMATION
  Report Type: Report from Study
  Country: US (occurrence: US)
  Receive Date: 20220628
  Receipt Date: 20230505
  Transmission Date: 20230722
  Serious: Yes (Death, Hospitalization, Other)
  Sender: FDA-Public Use
  Company Number: NVSC2022US145767

PATIENT
  Sex: Male
  Weight: 68.027 kg

DRUGS (13)
  1. TREPROSTINIL [Suspect]
     Active Substance: TREPROSTINIL
     Indication: Pulmonary arterial hypertension
     Dosage: 1.25 NG/KG/MIN, CONT (STRENGTH: 2.5 MG/ ML)
     Route: 058
     Dates: start: 20220607
  2. TREPROSTINIL [Suspect]
     Active Substance: TREPROSTINIL
     Dosage: 15 NG/KG/MIN, CONT  (STRENGTH: 2.5 MG/ ML)
     Route: 058
  3. TREPROSTINIL [Suspect]
     Active Substance: TREPROSTINIL
     Dosage: 3.75 NG/KG/MIN, CONT  (STRENGTH: 2.5 MG/ ML)
     Route: 058
  4. TREPROSTINIL [Suspect]
     Active Substance: TREPROSTINIL
     Dosage: 30 NG/KG/MIN, CONT  (STRENGTH: 2.5 MG/ ML)
     Route: 058
  5. TREPROSTINIL [Suspect]
     Active Substance: TREPROSTINIL
     Dosage: 33 NG/KG/MIN, CONT  (STRENGTH: 2.5 MG/ ML)
     Route: 058
  6. TREPROSTINIL [Suspect]
     Active Substance: TREPROSTINIL
     Dosage: 28 NG/KG/MIN, CONT  (STRENGTH: 2.5 MG/ ML)
     Route: 058
  7. TREPROSTINIL [Suspect]
     Active Substance: TREPROSTINIL
     Dosage: 26 NG/KG/MIN, CONT (CONCENTRATION: 5 MG/ML)
     Route: 058
  8. TREPROSTINIL [Suspect]
     Active Substance: TREPROSTINIL
     Dosage: 26 NG/KG/MIN, CONT (CONCENTRATION: 5 MG/ML)
     Route: 058
  9. OPSUMIT [Concomitant]
     Active Substance: MACITENTAN
     Indication: Product used for unknown indication
     Dosage: UNK
     Route: 065
  10. SILDENAFIL CITRATE [Concomitant]
     Active Substance: SILDENAFIL CITRATE
     Indication: Product used for unknown indication
     Dosage: UNK
     Route: 065
  11. XARELTO [Concomitant]
     Active Substance: RIVAROXABAN
     Indication: Product used for unknown indication
     Dosage: UNK
     Route: 065
  12. AMLODIPINE [Concomitant]
     Active Substance: AMLODIPINE BESYLATE
     Indication: Product used for unknown indication
     Dosage: UNK
     Route: 065
  13. REMODULIN [Concomitant]
     Active Substance: TREPROSTINIL
     Indication: Product used for unknown indication
     Dosage: UNK
     Route: 065

REACTIONS (19)
  - Death [Fatal]
  - Pneumoperitoneum [Unknown]
  - Malaise [Unknown]
  - Vomiting [Unknown]
  - Cellulitis [Unknown]
  - Hypotension [Unknown]
  - Dyspnoea at rest [Unknown]
  - Dyspnoea exertional [Unknown]
  - Weight decreased [Unknown]
  - Adverse drug reaction [Unknown]
  - Asthenia [Unknown]
  - Pain in jaw [Unknown]
  - Decreased appetite [Unknown]
  - Nausea [Unknown]
  - Application site pain [Unknown]
  - Injection site pain [Unknown]
  - Injection site swelling [Unknown]
  - Overdose [Unknown]
  - Accidental exposure to product [Unknown]
